FAERS Safety Report 4733394-8 (Version None)
Quarter: 2005Q3

REPORT INFORMATION
  Report Type: 
  Country: None (occurrence: None)
  Receive Date: 20050803
  Receipt Date: 20050304
  Transmission Date: 20060218
  Serious: Yes (Death, Life-Threatening, Hospitalization)
  Sender: FDA-Public Use
  Company Number: PHBS2005JP03254

PATIENT
  Age: 76 Year
  Sex: Male

DRUGS (3)
  1. TEGRETOL [Suspect]
     Indication: DEMENTIA ALZHEIMER'S TYPE
     Dosage: 300 MG/DAY
     Route: 048
     Dates: start: 20050114, end: 20050224
  2. TEGRETOL [Suspect]
     Dosage: 10 MG/DAY
     Route: 048
     Dates: start: 20050301, end: 20050317
  3. TEGRETOL [Suspect]
     Dosage: 15 MG/DAY
     Route: 048
     Dates: start: 20050317

REACTIONS (13)
  - ANOREXIA [None]
  - ASTHENIA [None]
  - BLOOD PRESSURE DECREASED [None]
  - C-REACTIVE PROTEIN INCREASED [None]
  - DERMATITIS EXFOLIATIVE [None]
  - DRUG HYPERSENSITIVITY [None]
  - PLATELET COUNT DECREASED [None]
  - PNEUMONIA [None]
  - PO2 DECREASED [None]
  - PYREXIA [None]
  - RASH [None]
  - THERAPY NON-RESPONDER [None]
  - UPPER RESPIRATORY TRACT INFECTION [None]
